FAERS Safety Report 13647617 (Version 1)
Quarter: 2017Q2

REPORT INFORMATION
  Report Type: Spontaneous
  Country: CA (occurrence: CA)
  Receive Date: 20170613
  Receipt Date: 20170613
  Transmission Date: 20170830
  Serious: Yes (Other)
  Sender: FDA-Public Use
  Company Number: CA-NOVOPROD-549075

PATIENT
  Age: 67 Year
  Sex: Female

DRUGS (3)
  1. VAGIFEM [Suspect]
     Active Substance: ESTRADIOL
     Indication: ATROPHIC VULVOVAGINITIS
     Dosage: 1 TAB, QD
     Route: 065
  2. VAGIFEM [Suspect]
     Active Substance: ESTRADIOL
     Dosage: 0.5 TAB, QD (THERAPY DURATION: 1 WEEK)
     Route: 065
  3. VAGIFEM [Suspect]
     Active Substance: ESTRADIOL
     Dosage: 1 TAB (1 EVERY 2 DAYS)
     Route: 065

REACTIONS (5)
  - White blood cell count increased [Unknown]
  - Seizure [Unknown]
  - Headache [Unknown]
  - Condition aggravated [Unknown]
  - Labelled drug-disease interaction medication error [Unknown]
